FAERS Safety Report 18646979 (Version 1)
Quarter: 2020Q4

REPORT INFORMATION
  Report Type: Spontaneous
  Country: FR (occurrence: FR)
  Receive Date: 20201221
  Receipt Date: 20201221
  Transmission Date: 20210114
  Serious: Yes (Other)
  Sender: FDA-Public Use
  Company Number: FR-LUNDBECK-DKLU3025607

PATIENT
  Sex: Female

DRUGS (3)
  1. VALPROIC ACID. [Suspect]
     Active Substance: VALPROIC ACID
     Indication: EPILEPSY
     Route: 065
  2. CLONAZEPAM. [Suspect]
     Active Substance: CLONAZEPAM
     Indication: EPILEPSY
     Route: 065
  3. VIGABATRIN (TABLET) [Suspect]
     Active Substance: VIGABATRIN
     Indication: EPILEPSY
     Route: 065

REACTIONS (2)
  - Seizure [Unknown]
  - Drug resistance [Unknown]
